FAERS Safety Report 4465286-6 (Version None)
Quarter: 2004Q3

REPORT INFORMATION
  Report Type: 
  Country: None (occurrence: None)
  Receive Date: 20040929
  Receipt Date: 20040916
  Transmission Date: 20050211
  Serious: Yes (Other)
  Sender: FDA-Public Use
  Company Number: 2004053489

PATIENT
  Sex: Female

DRUGS (9)
  1. DILANTIN KAPSEAL [Suspect]
     Indication: CLUSTER HEADACHE
  2. ZOLOFT [Suspect]
     Indication: ILL-DEFINED DISORDER
  3. FENTANYL [Suspect]
     Indication: ILL-DEFINED DISORDER
     Dosage: 1 IN 2 D
  4. ALL OTHER THERAPEUTIC PRODUCTS (ALL OTHER THERAPEUTIC PRODUCTS) [Suspect]
     Indication: ILL-DEFINED DISORDER
     Dosage: 8 MG (4 MG, 2 IN 1 D)
  5. TOPIRAMATE [Suspect]
     Indication: ILL-DEFINED DISORDER
  6. ANTIDEPRESSANTS (ANTIDEPRESSANTS) [Suspect]
     Indication: PAIN
  7. MORPHINE SULFATE [Concomitant]
  8. OXYCODONE HCL [Concomitant]
  9. OXYCODONE (OXYCODONE) [Concomitant]

REACTIONS (10)
  - BURNING SENSATION [None]
  - DRUG INEFFECTIVE [None]
  - GASTRIC HAEMORRHAGE [None]
  - HYPERSENSITIVITY [None]
  - KNEE OPERATION [None]
  - NERVE INJURY [None]
  - OESOPHAGEAL DISORDER [None]
  - PAIN [None]
  - PROCEDURAL COMPLICATION [None]
  - REFLEX SYMPATHETIC DYSTROPHY [None]
